FAERS Safety Report 4474117-X (Version None)
Quarter: 2004Q4

REPORT INFORMATION
  Report Type: 
  Country: None (occurrence: None)
  Receive Date: 20041008
  Receipt Date: 20040928
  Transmission Date: 20050328
  Serious: No
  Sender: FDA-Public Use
  Company Number: 04H-013-0275119-00

PATIENT

DRUGS (5)
  1. LEUCOVORIN CALCIUM [Suspect]
     Indication: CHEMOTHERAPY
     Dosage: 500 MG/M2, ONCE PER WEEK FOR 6 WEEKS
  2. FLUOROURACIL [Suspect]
     Indication: CHEMOTHERAPY
     Dosage: 2.0 MG/M2, ONCE PER WEEK FOR 6 WEEKS
  3. CISPLATIN [Suspect]
     Indication: CHEMOTHERAPY
     Dosage: 25 MG/M2, ONCE PER WEEK FOR 6 WEEKS
  4. 5 HT 3 ANTAGONIST [Concomitant]
  5. CORTICOSTEROID NOS [Concomitant]

REACTIONS (1)
  - FEBRILE NEUTROPENIA [None]
